FAERS Safety Report 5024892-0 (Version None)
Quarter: 2006Q2

REPORT INFORMATION
  Report Type: 
  Country: None (occurrence: None)
  Receive Date: 20060613
  Receipt Date: 20060130
  Transmission Date: 20061013
  Serious: Yes (Other)
  Sender: FDA-Public Use
  Company Number: PHFR2006GB00707

PATIENT
  Age: 7 Year
  Sex: Male

DRUGS (4)
  1. RITALIN [Suspect]
     Indication: ATTENTION DEFICIT/HYPERACTIVITY DISORDER
     Dosage: 5 MG, QD
     Route: 048
     Dates: start: 20031001
  2. CLONIDINE [Suspect]
     Indication: ATTENTION DEFICIT/HYPERACTIVITY DISORDER
     Dosage: 25 UG, BID
     Route: 048
     Dates: start: 20031201, end: 20040101
  3. SALBUTAMOL [Concomitant]
  4. BECOTIDE [Concomitant]

REACTIONS (2)
  - AGGRESSION [None]
  - ALOPECIA [None]
